FAERS Safety Report 6010775-6 (Version None)
Quarter: 2008Q4

REPORT INFORMATION
  Report Type: 
  Country: None (occurrence: None)
  Receive Date: 20081216
  Receipt Date: 20081201
  Transmission Date: 20090506
  Serious: Yes (Hospitalization)
  Sender: FDA-Public Use
  Company Number: KV200800673

PATIENT
  Age: 44 Year
  Sex: Female
  Weight: 100.7 kg

DRUGS (3)
  1. ISOSORBIDE MONONITRATE [Suspect]
     Indication: BLOOD PRESSURE
     Dosage: 30 MG, QD, ORAL
     Route: 048
  2. POTASSIUM (POTASSIUM) [Concomitant]
  3. MEDICATION FOR STOMACH PROBLEM [Concomitant]

REACTIONS (7)
  - ABDOMINAL DISCOMFORT [None]
  - DEHYDRATION [None]
  - FATIGUE [None]
  - HYPOKALAEMIA [None]
  - HYPOTENSION [None]
  - PRODUCT QUALITY ISSUE [None]
  - VERTIGO [None]
